FAERS Safety Report 23083404 (Version 1)
Quarter: 2023Q4

REPORT INFORMATION
  Report Type: Spontaneous
  Country: US (occurrence: None)
  Receive Date: 20231019
  Receipt Date: 20231019
  Transmission Date: 20240109
  Serious: Yes (Other)
  Sender: FDA-Public Use
  Company Number: None

PATIENT
  Sex: 0

DRUGS (2)
  1. BETHANECHOL [Suspect]
     Active Substance: BETHANECHOL
  2. BETHANECHOL [Suspect]
     Active Substance: BETHANECHOL

REACTIONS (1)
  - Product appearance confusion [None]
